FAERS Safety Report 9445569 (Version 1)
Quarter: 2013Q3

REPORT INFORMATION
  Report Type: Spontaneous
  Country: FR (occurrence: FR)
  Receive Date: 20130807
  Receipt Date: 20130807
  Transmission Date: 20140515
  Serious: Yes (Hospitalization)
  Sender: FDA-Public Use
  Company Number: FR-WATSON-2013-14000

PATIENT
  Age: 90 Year
  Sex: Male

DRUGS (2)
  1. RAMIPRIL (UNKNOWN) [Suspect]
     Indication: PRODUCT USED FOR UNKNOWN INDICATION
     Dosage: 5 MG, DAILY
     Route: 048
     Dates: start: 201209, end: 201210
  2. GLUCOPHAGE [Suspect]
     Indication: TYPE 2 DIABETES MELLITUS
     Dosage: 2250 MG, DAILY
     Route: 048
     Dates: start: 201209, end: 201210

REACTIONS (3)
  - General physical health deterioration [Not Recovered/Not Resolved]
  - Rash [Not Recovered/Not Resolved]
  - Eosinophilia [Not Recovered/Not Resolved]
